FAERS Safety Report 6504843-X (Version None)
Quarter: 2009Q4

REPORT INFORMATION
  Report Type: 
  Country: None (occurrence: None)
  Receive Date: 20091218
  Receipt Date: 20091209
  Transmission Date: 20100525
  Serious: Yes (Other)
  Sender: FDA-Public Use
  Company Number: JP-ASTRAZENECA-2009SE30330

PATIENT
  Age: 50 Year
  Sex: Female
  Weight: 46 kg

DRUGS (6)
  1. IRESSA [Suspect]
     Indication: LUNG ADENOCARCINOMA
     Route: 048
     Dates: start: 20060706, end: 20060712
  2. DEPAKENE [Concomitant]
     Route: 048
  3. DECADRON [Concomitant]
     Dosage: EVERY DAY
     Route: 048
  4. TAKEPRON [Concomitant]
     Route: 048
  5. MUCOSTA [Concomitant]
     Route: 048
  6. ALLOID G [Concomitant]
     Route: 048

REACTIONS (1)
  - LUNG DISORDER [None]
